FAERS Safety Report 17824490 (Version 1)
Quarter: 2020Q2

REPORT INFORMATION
  Report Type: Report from Study
  Country: TH (occurrence: TH)
  Receive Date: 20200526
  Receipt Date: 20200526
  Transmission Date: 20200714
  Serious: Yes (Death, Hospitalization)
  Sender: FDA-Public Use
  Company Number: TH-EISAI MEDICAL RESEARCH-EC-2020-071659

PATIENT
  Age: 57 Year
  Sex: Male

DRUGS (2)
  1. LENVIMA [Suspect]
     Active Substance: LENVATINIB
     Route: 048
     Dates: start: 20200420, end: 2020
  2. LENVIMA [Suspect]
     Active Substance: LENVATINIB
     Indication: HEPATOCELLULAR CARCINOMA
     Route: 048
     Dates: start: 20191225, end: 20200221

REACTIONS (5)
  - Death [Fatal]
  - Epistaxis [Unknown]
  - Weight decreased [Recovering/Resolving]
  - Mouth haemorrhage [Unknown]
  - Hypophagia [Recovering/Resolving]

NARRATIVE: CASE EVENT DATE: 202002
